FAERS Safety Report 11580830 (Version 1)
Quarter: 2015Q4

REPORT INFORMATION
  Report Type: Report from Study
  Country: AR (occurrence: AR)
  Receive Date: 20151001
  Receipt Date: 20151001
  Transmission Date: 20160304
  Serious: Yes (Other)
  Sender: FDA-Public Use
  Company Number: PHHY2015AR116687

PATIENT
  Sex: Female

DRUGS (3)
  1. AURENE [Suspect]
     Active Substance: OXCARBAZEPINE
     Indication: PRODUCT USED FOR UNKNOWN INDICATION
     Route: 065
  2. TRILEPTAL [Suspect]
     Active Substance: OXCARBAZEPINE
     Indication: SEIZURE
     Dosage: 300 OT, BID
     Route: 048
  3. TRILEPTAL [Suspect]
     Active Substance: OXCARBAZEPINE
     Dosage: 300 OT, QOD (1 EVERY 2 DAYS)
     Route: 048

REACTIONS (13)
  - Vomiting [Recovering/Resolving]
  - Malaise [Recovering/Resolving]
  - Anger [Recovering/Resolving]
  - Emotional disorder [Recovering/Resolving]
  - Movement disorder [Recovering/Resolving]
  - Dizziness [Recovering/Resolving]
  - Nervousness [Recovering/Resolving]
  - Speech disorder [Recovering/Resolving]
  - Memory impairment [Recovering/Resolving]
  - Petit mal epilepsy [Recovering/Resolving]
  - Drug intolerance [Unknown]
  - Abdominal pain upper [Recovering/Resolving]
  - Seizure [Recovering/Resolving]
